FAERS Safety Report 26100529 (Version 2)
Quarter: 2025Q4

REPORT INFORMATION
  Report Type: Spontaneous
  Country: OM (occurrence: None)
  Receive Date: 20251128
  Receipt Date: 20251230
  Transmission Date: 20260118
  Serious: Yes (Death)
  Sender: CHIESI
  Company Number: OM-CHIESI-2025CHF08419

PATIENT
  Age: 12 Year
  Sex: Male

DRUGS (2)
  1. METRELEPTIN [Suspect]
     Active Substance: METRELEPTIN
     Indication: Congenital generalised lipodystrophy
     Dosage: 2.8 MILLIGRAM, QD
     Dates: start: 201811
  2. METRELEPTIN [Suspect]
     Active Substance: METRELEPTIN
     Dosage: 2.8 MILLIGRAM, QD

REACTIONS (1)
  - Arrhythmia [Fatal]

NARRATIVE: CASE EVENT DATE: 20251115
